FAERS Safety Report 11197252 (Version 1)
Quarter: 2015Q2

REPORT INFORMATION
  Report Type: Spontaneous
  Country: US (occurrence: US)
  Receive Date: 20150617
  Receipt Date: 20150617
  Transmission Date: 20150821
  Serious: No
  Sender: FDA-Public Use
  Company Number: US-SA-2015SA036146

PATIENT
  Age: 6 Year
  Sex: Female
  Weight: 22.7 kg

DRUGS (8)
  1. CEREZYME [Suspect]
     Active Substance: IMIGLUCERASE
     Indication: LIPIDOSIS
     Dosage: DOSE:52.86 UNIT(S)/KILOGRAM BODYWEIGHT
     Route: 041
     Dates: start: 20140918
  2. NORMAL SALINE [Concomitant]
     Active Substance: SODIUM CHLORIDE
  3. WATER. [Concomitant]
     Active Substance: WATER
  4. CEREZYME [Suspect]
     Active Substance: IMIGLUCERASE
     Indication: LIPIDOSIS
     Dosage: DOSE:52.86 UNIT(S)/KILOGRAM BODYWEIGHT
     Route: 041
     Dates: start: 20140918
  5. LIDOCAINE/PRILOCAINE [Concomitant]
  6. SODIUM CHLORIDE. [Concomitant]
     Active Substance: SODIUM CHLORIDE
  7. EPIPEN [Concomitant]
     Active Substance: EPINEPHRINE
  8. EMLA [Concomitant]
     Active Substance: LIDOCAINE\PRILOCAINE

REACTIONS (1)
  - Back pain [Recovered/Resolved]

NARRATIVE: CASE EVENT DATE: 20150316
